FAERS Safety Report 10371282 (Version 1)
Quarter: 2014Q3

REPORT INFORMATION
  Report Type: Spontaneous
  Country: US (occurrence: None)
  Receive Date: 20140807
  Receipt Date: 20140807
  Transmission Date: 20150326
  Serious: Yes (Other)
  Sender: FDA-Public Use
  Company Number: None

PATIENT
  Age: 21 Year
  Sex: Male
  Weight: 79.38 kg

DRUGS (1)
  1. MINOCYCLINE [Suspect]
     Active Substance: MINOCYCLINE\MINOCYCLINE HYDROCHLORIDE
     Indication: HIDRADENITIS
     Route: 048
     Dates: start: 20010731, end: 20140714

REACTIONS (5)
  - Skin discolouration [None]
  - Deformity [None]
  - Ill-defined disorder [None]
  - Oral mucosal discolouration [None]
  - Ear disorder [None]

NARRATIVE: CASE EVENT DATE: 20040807
